FAERS Safety Report 20091766 (Version 4)
Quarter: 2022Q1

REPORT INFORMATION
  Report Type: Report from Study
  Country: US (occurrence: US)
  Receive Date: 20211119
  Receipt Date: 20220303
  Transmission Date: 20220423
  Serious: Yes (Hospitalization)
  Sender: FDA-Public Use
  Company Number: US-TAKEDA-US202031640

PATIENT
  Sex: Female

DRUGS (1)
  1. HUMAN IMMUNOGLOBULIN G\HYALURONIDASE RECOMBINANT HUMAN [Suspect]
     Active Substance: HUMAN IMMUNOGLOBULIN G\HYALURONIDASE RECOMBINANT HUMAN
     Indication: Primary immunodeficiency syndrome
     Dosage: UNK
     Route: 065

REACTIONS (13)
  - Arthropathy [Recovering/Resolving]
  - Vitamin D increased [Unknown]
  - Eye irritation [Unknown]
  - Stress [Unknown]
  - Arthropod sting [Unknown]
  - Fall [Unknown]
  - Neck injury [Unknown]
  - Gastroenteritis viral [Unknown]
  - COVID-19 [Recovered/Resolved]
  - Synovial cyst [Unknown]
  - Neck pain [Unknown]
  - Arthralgia [Not Recovered/Not Resolved]
  - Muscle spasms [Unknown]
